FAERS Safety Report 12095461 (Version 4)
Quarter: 2016Q3

REPORT INFORMATION
  Report Type: Spontaneous
  Country: FR (occurrence: FR)
  Receive Date: 20160219
  Receipt Date: 20160930
  Transmission Date: 20161109
  Serious: Yes (Hospitalization)
  Sender: FDA-Public Use
  Company Number: FR-SA-2016SA030585

PATIENT
  Age: 44 Year
  Sex: Female

DRUGS (9)
  1. ATARAX [Suspect]
     Active Substance: HYDROXYZINE\HYDROXYZINE HYDROCHLORIDE
     Route: 065
     Dates: start: 2013
  2. EFFEXOR [Suspect]
     Active Substance: VENLAFAXINE HYDROCHLORIDE
     Route: 065
     Dates: start: 2013
  3. LOXAPAC [Suspect]
     Active Substance: LOXAPINE SUCCINATE
     Route: 065
  4. STILNOX [Suspect]
     Active Substance: ZOLPIDEM TARTRATE
     Route: 065
  5. XEROQUEL [Suspect]
     Active Substance: QUETIAPINE FUMARATE
     Route: 065
     Dates: start: 2013
  6. VALIUM [Suspect]
     Active Substance: DIAZEPAM
     Route: 065
     Dates: start: 2013
  7. EFFEXOR [Suspect]
     Active Substance: VENLAFAXINE HYDROCHLORIDE
     Route: 065
  8. VALDOXAN [Suspect]
     Active Substance: AGOMELATINE
     Route: 048
     Dates: start: 2013
  9. NOCTAMIDE [Suspect]
     Active Substance: LORMETAZEPAM
     Route: 065

REACTIONS (3)
  - Cholestasis [Recovered/Resolved with Sequelae]
  - Nausea [Recovered/Resolved with Sequelae]
  - Gamma-glutamyltransferase increased [Recovered/Resolved with Sequelae]

NARRATIVE: CASE EVENT DATE: 201510
